FAERS Safety Report 10064026 (Version 2)
Quarter: 2014Q2

REPORT INFORMATION
  Report Type: Report from Study
  Country: US (occurrence: US)
  Receive Date: 20140408
  Receipt Date: 20140425
  Transmission Date: 20141212
  Serious: Yes (Hospitalization)
  Sender: FDA-Public Use
  Company Number: US-BRISTOL-MYERS SQUIBB COMPANY-20567913

PATIENT
  Age: 73 Year
  Sex: Female
  Weight: 45.35 kg

DRUGS (6)
  1. ABATACEPT SUBQ INJECTION 125MG/ML [Suspect]
     Indication: RHEUMATOID ARTHRITIS
     Dosage: 1DF: 125MG/ML?LAST DOSE ON 22MAR14
     Route: 058
     Dates: start: 20121113
  2. OMEPRAZOLE [Concomitant]
  3. METOPROLOL [Concomitant]
  4. ACETYLSALICYLIC ACID [Concomitant]
  5. COSOPT [Concomitant]
  6. BIMATOPROST [Concomitant]

REACTIONS (4)
  - Vomiting [Unknown]
  - Asthenia [Unknown]
  - Gastric disorder [Unknown]
  - Viral infection [Unknown]
